FAERS Safety Report 16914433 (Version 2)
Quarter: 2019Q4

REPORT INFORMATION
  Report Type: Spontaneous
  Country: CH (occurrence: CH)
  Receive Date: 20191014
  Receipt Date: 20191025
  Transmission Date: 20200122
  Serious: Yes (Other)
  Sender: FDA-Public Use
  Company Number: CH-SA-2019SA258023

PATIENT
  Age: 54 Year
  Sex: Female
  Weight: 60 kg

DRUGS (2)
  1. KEVZARA [Suspect]
     Active Substance: SARILUMAB
     Indication: RHEUMATOID ARTHRITIS
     Dosage: 200 MG
     Dates: start: 20190805, end: 20190830
  2. ACTEMRA [Concomitant]
     Active Substance: TOCILIZUMAB

REACTIONS (9)
  - Injection site erythema [Unknown]
  - Lymphadenopathy [Recovered/Resolved]
  - Lymph node pain [Recovered/Resolved]
  - Feeling cold [Unknown]
  - Urticaria [Recovered/Resolved]
  - Injection site pruritus [Unknown]
  - Rash [Not Recovered/Not Resolved]
  - Drug intolerance [Unknown]
  - Injection site warmth [Unknown]

NARRATIVE: CASE EVENT DATE: 2019
